FAERS Safety Report 5692921-7 (Version None)
Quarter: 2008Q2

REPORT INFORMATION
  Report Type: 
  Country: None (occurrence: None)
  Receive Date: 20080403
  Receipt Date: 20080326
  Transmission Date: 20081010
  Serious: Yes (Other)
  Sender: FDA-Public Use
  Company Number: GB-RANBAXY-2008RR-14066

PATIENT

DRUGS (1)
  1. RANITIDINE TABLETS BP 75 MG [Suspect]
     Indication: DYSPEPSIA
     Dosage: 75 MG, UNK

REACTIONS (1)
  - DRUG INEFFECTIVE [None]
